FAERS Safety Report 9663006 (Version 1)
Quarter: 2013Q4

REPORT INFORMATION
  Report Type: Spontaneous
  Country: US (occurrence: US)
  Receive Date: 20131031
  Receipt Date: 20131031
  Transmission Date: 20140711
  Serious: No
  Sender: FDA-Public Use
  Company Number: US-PURDUE-USA-2011-0075719

PATIENT
  Age: 46 Year
  Sex: Male

DRUGS (3)
  1. OXYCODONE HYDROCHLORIDE (SIMILAR TO NDA 22-272) [Suspect]
     Indication: PAIN
     Dosage: 90 MG, DAILY
  2. OXYCODONE HYDROCHLORIDE (SIMILAR TO NDA 22-272) [Suspect]
     Dosage: 30 MG, DAILY
  3. DEMEROL [Concomitant]
     Indication: PAIN

REACTIONS (1)
  - Arthralgia [Unknown]
